FAERS Safety Report 5897257-7 (Version None)
Quarter: 2008Q3

REPORT INFORMATION
  Report Type: 
  Country: None (occurrence: None)
  Receive Date: 20080923
  Receipt Date: 20080911
  Transmission Date: 20090109
  Serious: Yes (Disabling, Other)
  Sender: FDA-Public Use
  Company Number: 2008AL001617

PATIENT
  Age: 31 Year
  Sex: Female

DRUGS (6)
  1. NIFEDIPINE CAPSULES USP, 10 MG (PEG FORMULATION) [Suspect]
     Indication: INSOMNIA
     Dosage: 10 MG
     Dates: start: 20040101
  2. AMITRIPTYLINE HCL [Concomitant]
  3. PROVIGIL [Concomitant]
  4. NORDETTE-28 [Concomitant]
  5. CALCICHEW [Concomitant]
  6. MULTI-VITAMIN [Concomitant]

REACTIONS (7)
  - ARTHRALGIA [None]
  - IMPAIRED WORK ABILITY [None]
  - JOINT STIFFNESS [None]
  - JOINT SWELLING [None]
  - LUPUS-LIKE SYNDROME [None]
  - RASH [None]
  - SKIN LESION [None]
